FAERS Safety Report 11601164 (Version 1)
Quarter: 2015Q4

REPORT INFORMATION
  Report Type: Spontaneous
  Country: US (occurrence: US)
  Receive Date: 20151006
  Receipt Date: 20151006
  Transmission Date: 20160304
  Serious: No
  Sender: FDA-Public Use
  Company Number: US-AMGEN-USASP2015008743

PATIENT
  Age: 55 Year
  Sex: Female

DRUGS (8)
  1. EVOXAC [Concomitant]
     Active Substance: CEVIMELINE HYDROCHLORIDE
  2. PROLIA [Suspect]
     Active Substance: DENOSUMAB
     Indication: OSTEOPOROSIS POSTMENOPAUSAL
     Dosage: UNK
     Route: 065
     Dates: start: 201402
  3. TRAMADOL. [Concomitant]
     Active Substance: TRAMADOL
     Indication: ARTHRITIS
     Dosage: UNK
  4. PREDNISONE. [Concomitant]
     Active Substance: PREDNISONE
  5. MELOXICAM. [Concomitant]
     Active Substance: MELOXICAM
  6. AMBRISENTAN [Concomitant]
     Active Substance: AMBRISENTAN
  7. NEXIUM [Concomitant]
     Active Substance: ESOMEPRAZOLE MAGNESIUM
  8. ATORVASTATIN [Concomitant]
     Active Substance: ATORVASTATIN

REACTIONS (8)
  - Glossodynia [Unknown]
  - Activities of daily living impaired [Unknown]
  - Rash [Unknown]
  - Pain in extremity [Unknown]
  - Scab [Unknown]
  - Hypoaesthesia oral [Unknown]
  - Pain in jaw [Not Recovered/Not Resolved]
  - Pain [Unknown]

NARRATIVE: CASE EVENT DATE: 2014
